FAERS Safety Report 12482200 (Version 2)
Quarter: 2016Q2

REPORT INFORMATION
  Report Type: Report from Study
  Country: CA (occurrence: CA)
  Receive Date: 20160620
  Receipt Date: 20160624
  Transmission Date: 20160815
  Serious: Yes (Hospitalization)
  Sender: FDA-Public Use
  Company Number: CA-JNJFOC-20160614076

PATIENT
  Age: 68 Year
  Sex: Female

DRUGS (1)
  1. REMICADE [Suspect]
     Active Substance: INFLIXIMAB
     Indication: COLITIS ULCERATIVE
     Route: 042
     Dates: start: 20151201, end: 20160308

REACTIONS (2)
  - Drug ineffective [Unknown]
  - Colectomy total [Unknown]

NARRATIVE: CASE EVENT DATE: 201604
